FAERS Safety Report 22353984 (Version 1)
Quarter: 2023Q2

REPORT INFORMATION
  Report Type: Spontaneous
  Country: US (occurrence: None)
  Receive Date: 20230522
  Receipt Date: 20230522
  Transmission Date: 20230721
  Serious: Yes (Disabling)
  Sender: FDA-Public Use
  Company Number: None

PATIENT
  Age: 52 Year
  Sex: Male
  Weight: 63 kg

DRUGS (10)
  1. ARTIFICIAL TEARS LUBRICANT EYE DROPS (CARBOXYMETHYLCELLULOSE SODIUM) [Suspect]
     Active Substance: CARBOXYMETHYLCELLULOSE SODIUM
     Indication: Dry eye
     Dosage: OTHER QUANTITY : 1 DROP(S);?FREQUENCY : AS NEEDED;?
     Route: 047
  2. LISINOPRIL [Concomitant]
  3. FUROSEMIDE [Concomitant]
     Active Substance: FUROSEMIDE
  4. POTASSIUM [Concomitant]
  5. METHADONE [Concomitant]
     Active Substance: METHADONE HYDROCHLORIDE
  6. ALPRAZOLAM [Concomitant]
     Active Substance: ALPRAZOLAM
  7. OXYCODONE [Concomitant]
     Active Substance: OXYCODONE
  8. OXYGEN [Concomitant]
     Active Substance: OXYGEN
  9. PROMETHAZINE [Concomitant]
     Active Substance: PROMETHAZINE HYDROCHLORIDE
  10. GABAPENTIN [Concomitant]
     Active Substance: GABAPENTIN

REACTIONS (2)
  - Conjunctivitis [None]
  - Eye pain [None]

NARRATIVE: CASE EVENT DATE: 20230105
